FAERS Safety Report 25720239 (Version 3)
Quarter: 2025Q3

REPORT INFORMATION
  Report Type: Spontaneous
  Country: US (occurrence: US)
  Receive Date: 20250825
  Receipt Date: 20250905
  Transmission Date: 20251021
  Serious: Yes (Other)
  Sender: AMNEAL
  Company Number: US-AMNEAL PHARMACEUTICALS-2025-AMRX-03137

PATIENT
  Age: 29 Year
  Sex: Female
  Weight: 89.342 kg

DRUGS (1)
  1. ADRENACLICK [Suspect]
     Active Substance: EPINEPHRINE
     Indication: Anaphylactic reaction
     Route: 030
     Dates: start: 20250810

REACTIONS (2)
  - Device failure [Unknown]
  - No adverse event [Unknown]

NARRATIVE: CASE EVENT DATE: 20250810
